FAERS Safety Report 5253695-7 (Version None)
Quarter: 2007Q1

REPORT INFORMATION
  Report Type: 
  Country: None (occurrence: None)
  Receive Date: 20070301
  Receipt Date: 20070227
  Transmission Date: 20070707
  Serious: Yes (Hospitalization)
  Sender: FDA-Public Use
  Company Number: NZ-MERCK-0702NZL00015

PATIENT
  Sex: Male

DRUGS (12)
  1. ZOCOR [Suspect]
     Route: 048
  2. ROXITHROMYCIN [Suspect]
     Route: 065
  3. RANITIDINE HYDROCHLORIDE [Concomitant]
     Route: 048
  4. FOLIC ACID [Concomitant]
     Route: 048
  5. COLCHICINE [Concomitant]
     Route: 048
  6. CANDESARTAN CILEXETIL [Concomitant]
     Route: 048
  7. ALLOPURINOL [Concomitant]
     Route: 048
  8. ALUMINUM HYDROXIDE AND MAGNESIUM HYDROXIDE AND SIMETHICONE [Concomitant]
     Route: 065
  9. FUROSEMIDE [Concomitant]
     Route: 048
  10. BENDROFLUMETHIAZIDE [Concomitant]
     Route: 048
  11. EPOETIN BETA [Concomitant]
     Route: 051
  12. QUININE SULFATE [Concomitant]
     Route: 048

REACTIONS (2)
  - DRUG INTERACTION [None]
  - RHABDOMYOLYSIS [None]
